FAERS Safety Report 9695047 (Version 1)
Quarter: 2013Q1

REPORT INFORMATION
  Report Type: Spontaneous
  Country: US (occurrence: None)
  Receive Date: 20130211
  Receipt Date: 20130211
  Transmission Date: 20140127
  Serious: Yes (Other)
  Sender: FDA-Public Use
  Company Number: 2013-001

PATIENT
  Age: 21 Year
  Sex: Female

DRUGS (1)
  1. DIUREX ULTRA [Suspect]
     Indication: WEIGHT INCREASED
     Route: 048
     Dates: start: 20130206

REACTIONS (1)
  - Dehydration [None]
